FAERS Safety Report 11744822 (Version 2)
Quarter: 2015Q4

REPORT INFORMATION
  Report Type: Spontaneous
  Country: IT (occurrence: IT)
  Receive Date: 20151116
  Receipt Date: 20151130
  Transmission Date: 20160304
  Serious: Yes (Other)
  Sender: FDA-Public Use
  Company Number: IT-TEVA-607527ACC

PATIENT
  Age: 72 Year
  Sex: Female
  Weight: 75 kg

DRUGS (9)
  1. DOXORUBICIN HYDROCHLORIDE. [Suspect]
     Active Substance: DOXORUBICIN HYDROCHLORIDE
     Indication: NON-HODGKIN^S LYMPHOMA
     Dosage: 85 MG CYCLICAL
     Route: 042
     Dates: start: 20150819, end: 20150819
  2. ENDOXAN BAXTER - 1 G POLVERE PER SOLUZIONE INIETTABILE [Suspect]
     Active Substance: CYCLOPHOSPHAMIDE
     Indication: NON-HODGKIN^S LYMPHOMA
     Dosage: 1350 MG/M2 CYCLICAL
     Route: 042
     Dates: start: 20150630
  3. ENDOXAN BAXTER - 1 G POLVERE PER SOLUZIONE INIETTABILE [Suspect]
     Active Substance: CYCLOPHOSPHAMIDE
     Indication: NON-HODGKIN^S LYMPHOMA
     Dosage: 1280 MG CYCLICAL
     Route: 042
     Dates: start: 20150819, end: 20150819
  4. PEPTAZOL - RECORDATI INDUTRIA CHIMICA E FARMACEUTICA S.P.A [Concomitant]
     Indication: GASTRITIS
  5. DOXORUBICIN HYDROCHLORIDE. [Suspect]
     Active Substance: DOXORUBICIN HYDROCHLORIDE
     Indication: NON-HODGKIN^S LYMPHOMA
     Dosage: 90 MG/M2 CYCLICAL
     Route: 042
     Dates: start: 20150630
  6. VINCRISTINA TEVA ITALIA 1 MG/ML SOLUZIONE INIETTABILE - TEVA ITALIA S. [Suspect]
     Active Substance: VINCRISTINE SULFATE
     Indication: NON-HODGKIN^S LYMPHOMA
     Dosage: 2 MG/M2 CYCLICAL
     Route: 042
     Dates: start: 20150630
  7. BACTRIM - ROCHE S.P.A. [Concomitant]
     Indication: ANTIBIOTIC THERAPY
  8. VINCRISTINA TEVA ITALIA 1 MG/ML SOLUZIONE INIETTABILE - TEVA ITALIA S. [Suspect]
     Active Substance: VINCRISTINE SULFATE
     Indication: NON-HODGKIN^S LYMPHOMA
     Dosage: 2 MG CYCLICAL
     Route: 042
     Dates: start: 20150819, end: 20150819
  9. LONQUEX - 6 MG SOLUZIONE INIETTABILE [Concomitant]
     Indication: NEUTROPENIA
     Dosage: .6 MG
     Route: 058

REACTIONS (1)
  - Neutropenia [Recovering/Resolving]

NARRATIVE: CASE EVENT DATE: 20150908
